FAERS Safety Report 18534484 (Version 1)
Quarter: 2020Q4

REPORT INFORMATION
  Report Type: Report from Study
  Country: GB (occurrence: GB)
  Receive Date: 20201123
  Receipt Date: 20201123
  Transmission Date: 20210114
  Serious: Yes (Other)
  Sender: FDA-Public Use
  Company Number: GB-JNJFOC-20201128503

PATIENT
  Sex: Female

DRUGS (7)
  1. RIFINAH [Concomitant]
     Active Substance: ISONIAZID\RIFAMPIN
  2. IRON [Concomitant]
     Active Substance: IRON
  3. STELARA [Suspect]
     Active Substance: USTEKINUMAB
  4. STELARA [Suspect]
     Active Substance: USTEKINUMAB
     Indication: PSORIASIS
     Route: 058
  5. LANSOPRAZOLE. [Concomitant]
     Active Substance: LANSOPRAZOLE
  6. SERTRALINE [Concomitant]
     Active Substance: SERTRALINE HYDROCHLORIDE
  7. PYRIDOXINE [Concomitant]
     Active Substance: PYRIDOXINE

REACTIONS (1)
  - Latent tuberculosis [Unknown]
